FAERS Safety Report 4535924-8 (Version None)
Quarter: 2004Q4

REPORT INFORMATION
  Report Type: 
  Country: None (occurrence: None)
  Receive Date: 20041220
  Receipt Date: 20041210
  Transmission Date: 20050328
  Serious: Yes (Other)
  Sender: FDA-Public Use
  Company Number: 2004109080

PATIENT
  Age: 47 Year
  Sex: Male

DRUGS (1)
  1. CELEBREX [Suspect]
     Indication: ARTHRALGIA
     Dosage: 200 MG (200 MG, 1 IN 1 D), ORAL
     Route: 048

REACTIONS (1)
  - DEEP VEIN THROMBOSIS [None]
